FAERS Safety Report 10366876 (Version 3)
Quarter: 2016Q3

REPORT INFORMATION
  Report Type: Report from Study
  Country: CA (occurrence: CA)
  Receive Date: 20140807
  Receipt Date: 20160915
  Transmission Date: 20161109
  Serious: Yes (Other)
  Sender: FDA-Public Use
  Company Number: CA-UCBSA-2014007673

PATIENT
  Age: 68 Year
  Sex: Female
  Weight: 84 kg

DRUGS (13)
  1. OMEPRAZOLE. [Concomitant]
     Active Substance: OMEPRAZOLE
     Dosage: 20 MG, AS NEEDED (PRN)
  2. KETOROLAC [Concomitant]
     Active Substance: KETOROLAC\KETOROLAC TROMETHAMINE
     Dosage: 10 MG, 4X/DAY (QID)
  3. CERTOLIZUMAB PEGOL RA [Suspect]
     Active Substance: CERTOLIZUMAB PEGOL
     Dosage: UNK
     Dates: start: 201508
  4. SYNTHROID [Concomitant]
     Active Substance: LEVOTHYROXINE SODIUM
     Indication: HYPOTHYROIDISM
     Dosage: DAILY DOSE: 0.125 MG
     Route: 048
  5. OXYNEO [Concomitant]
     Active Substance: OXYCODONE
     Indication: PAIN
     Dosage: 20 MG, 3X/DAY (TID)
     Route: 048
  6. PERCOCET [Concomitant]
     Active Substance: ACETAMINOPHEN\OXYCODONE HYDROCHLORIDE
     Indication: PAIN
     Dosage: 2 TABLETS AS NEEDED
     Route: 048
  7. GABAPENTIN. [Concomitant]
     Active Substance: GABAPENTIN
     Indication: PAIN
     Dosage: 400 MG, 3X/DAY (TID)
     Route: 048
  8. TEMAZEPAM. [Concomitant]
     Active Substance: TEMAZEPAM
     Dosage: AT BEDTIME
  9. PROZAC [Concomitant]
     Active Substance: FLUOXETINE HYDROCHLORIDE
     Dosage: 20 MG, ONCE DAILY (QD)
  10. VANCOMYCIN ABBOTT [Concomitant]
     Indication: LOCALISED INFECTION
     Dosage: 1 G, 2X/DAY (BID)
     Route: 042
  11. RIFAMPIN. [Concomitant]
     Active Substance: RIFAMPIN
     Indication: LOCALISED INFECTION
     Dosage: 300 MG, 2X/DAY (BID)
     Route: 048
  12. HYDROMORPHONE [Concomitant]
     Active Substance: HYDROMORPHONE
     Dosage: 8 MG, 3X/DAY (TID)
  13. CERTOLIZUMAB PEGOL RA [Suspect]
     Active Substance: CERTOLIZUMAB PEGOL
     Indication: RHEUMATOID ARTHRITIS
     Dosage: 200 MG, EV 2 WEEKS(QOW) X 3
     Route: 058
     Dates: start: 20131010, end: 20140630

REACTIONS (2)
  - Localised infection [Recovered/Resolved]
  - Drug ineffective [Unknown]

NARRATIVE: CASE EVENT DATE: 20140715
